FAERS Safety Report 17953229 (Version 1)
Quarter: 2020Q2

REPORT INFORMATION
  Report Type: Spontaneous
  Country: FR (occurrence: FR)
  Receive Date: 20200627
  Receipt Date: 20200627
  Transmission Date: 20200714
  Serious: Yes (Other)
  Sender: FDA-Public Use
  Company Number: NVSC2020FR178870

PATIENT
  Age: 45 Year
  Sex: Female

DRUGS (4)
  1. XANAX [Suspect]
     Active Substance: ALPRAZOLAM
     Indication: MEDICATION ERROR
     Dosage: 0.25 MG 1 TOTAL
     Route: 048
     Dates: start: 20200430
  2. TEGRETOL [Suspect]
     Active Substance: CARBAMAZEPINE
     Indication: MEDICATION ERROR
     Dosage: 400 MG 1 TOTAL
     Route: 048
     Dates: start: 20200430
  3. TERCIAN [Suspect]
     Active Substance: CYAMEMAZINE
     Indication: MEDICATION ERROR
     Dosage: 25 MG 1 TOTAL
     Route: 048
     Dates: start: 20200430
  4. RISPERDALORO [Suspect]
     Active Substance: RISPERIDONE
     Indication: MEDICATION ERROR
     Dosage: 2 MG 1 TOTAL
     Route: 048
     Dates: start: 20200430

REACTIONS (3)
  - Somnolence [Recovered/Resolved]
  - Wrong patient received product [Recovered/Resolved]
  - Medication error [Recovered/Resolved]

NARRATIVE: CASE EVENT DATE: 20200430
